FAERS Safety Report 7119347-3 (Version None)
Quarter: 2010Q4

REPORT INFORMATION
  Report Type: 
  Country: None (occurrence: None)
  Receive Date: 20101123
  Receipt Date: 20101115
  Transmission Date: 20110411
  Serious: Yes (Hospitalization)
  Sender: FDA-Public Use
  Company Number: CA-JNJFOC-20101106229

PATIENT
  Sex: Female
  Weight: 95.2 kg

DRUGS (16)
  1. GOLIMUMAB [Suspect]
     Indication: RHEUMATOID ARTHRITIS
     Route: 058
  2. GOLIMUMAB [Suspect]
     Route: 058
  3. METHOTREXATE [Concomitant]
     Route: 058
  4. LEUCOVORIN CALCIUM [Concomitant]
     Route: 048
  5. SENOKOT [Concomitant]
     Route: 048
  6. PANTOLOC [Concomitant]
     Route: 048
  7. PREDNISONE [Concomitant]
     Route: 048
  8. CELEBREX [Concomitant]
     Route: 048
  9. SALMON OIL [Concomitant]
     Route: 048
  10. FISH OIL [Concomitant]
     Route: 048
  11. ACETAMINOPHEN W/ CODEINE [Concomitant]
     Route: 048
  12. HYDROCHLOROTHIAZIDE [Concomitant]
     Route: 048
  13. DETROL [Concomitant]
     Route: 048
  14. LORAZEPAM [Concomitant]
     Route: 048
  15. VESICARE [Concomitant]
     Route: 048
  16. OLMESARTAN MEDOXOMIL AND HYDROCHLOROTHIZIDE [Concomitant]
     Route: 048

REACTIONS (1)
  - PNEUMONIA [None]
